FAERS Safety Report 18552888 (Version 1)
Quarter: 2020Q4

REPORT INFORMATION
  Report Type: Spontaneous
  Country: US (occurrence: US)
  Receive Date: 20201127
  Receipt Date: 20201127
  Transmission Date: 20210114
  Serious: No
  Sender: FDA-Public Use
  Company Number: US-ELI_LILLY_AND_COMPANY-US202011012492

PATIENT
  Sex: Male

DRUGS (2)
  1. CETUXIMAB. [Suspect]
     Active Substance: CETUXIMAB
     Indication: METASTATIC NEOPLASM
  2. CETUXIMAB. [Suspect]
     Active Substance: CETUXIMAB
     Indication: THROAT CANCER
     Dosage: UNK UNK, UNKNOWN
     Route: 065

REACTIONS (4)
  - Nail bed inflammation [Unknown]
  - Onychomadesis [Unknown]
  - Onychalgia [Unknown]
  - Nail discolouration [Unknown]
